FAERS Safety Report 15744517 (Version 1)
Quarter: 2018Q4

REPORT INFORMATION
  Report Type: Spontaneous
  Country: US (occurrence: US)
  Receive Date: 20181205
  Receipt Date: 20181205
  Transmission Date: 20190205
  Serious: Yes (Hospitalization)
  Sender: FDA-Public Use
  Company Number: None

PATIENT
  Age: 13 Year
  Sex: Male

DRUGS (7)
  1. CETIRIZINE [Concomitant]
     Active Substance: CETIRIZINE HYDROCHLORIDE
  2. TOBRAMYCIN 300MG/5ML SOLN [Suspect]
     Active Substance: TOBRAMYCIN
     Indication: VIRAL INFECTION
     Route: 055
     Dates: start: 20150407
  3. SINGULAIR [Concomitant]
     Active Substance: MONTELUKAST SODIUM
  4. TOBRAMYCIN 300MG/5ML SOLN [Suspect]
     Active Substance: TOBRAMYCIN
     Indication: BRONCHITIS
     Route: 055
     Dates: start: 20150407
  5. PULMOZYME [Concomitant]
     Active Substance: DORNASE ALFA
  6. MONTELUKAST [Concomitant]
     Active Substance: MONTELUKAST SODIUM
  7. TOBRAMYCIN 300MG/5ML SOLN [Suspect]
     Active Substance: TOBRAMYCIN
     Indication: ASTHMA
     Route: 055
     Dates: start: 20150407

REACTIONS (1)
  - Rhinovirus infection [None]

NARRATIVE: CASE EVENT DATE: 20181001
